FAERS Safety Report 7983213-1 (Version None)
Quarter: 2011Q4

REPORT INFORMATION
  Report Type: 
  Country: None (occurrence: None)
  Receive Date: 20111215
  Receipt Date: 20111204
  Transmission Date: 20120403
  Serious: Yes (Other)
  Sender: FDA-Public Use
  Company Number: US-BAYER-2011-117417

PATIENT
  Sex: Female
  Weight: 63.492 kg

DRUGS (4)
  1. ZYRTEC [Concomitant]
     Indication: SINUS HEADACHE
  2. ASPIRIN [Suspect]
     Indication: ARTHRITIS
     Dosage: 4 DF, PRN, BOTTLE COUNT 36S
  3. CARISOPRODOL [Concomitant]
  4. ASPIRIN [Suspect]

REACTIONS (2)
  - INCREASED TENDENCY TO BRUISE [None]
  - HAEMORRHAGIC DIATHESIS [None]
